FAERS Safety Report 6264523-5 (Version None)
Quarter: 2009Q3

REPORT INFORMATION
  Report Type: 
  Country: None (occurrence: None)
  Receive Date: 20090710
  Receipt Date: 20090624
  Transmission Date: 20100115
  Serious: Yes (Death)
  Sender: FDA-Public Use
  Company Number: DE-JNJFOC-20090607978

PATIENT
  Age: 97 Year
  Sex: Female

DRUGS (7)
  1. RISPERDAL [Suspect]
     Indication: DRUG USE FOR UNKNOWN INDICATION
     Route: 048
  2. MELNEURIN [Suspect]
     Route: 048
  3. MELNEURIN [Suspect]
     Indication: DRUG USE FOR UNKNOWN INDICATION
     Route: 048
  4. DOMINAL [Suspect]
     Indication: DRUG USE FOR UNKNOWN INDICATION
     Route: 048
  5. DIGITOXIN TAB [Concomitant]
     Route: 048
  6. LISINOPRIL [Concomitant]
     Route: 048
  7. FUROSEMID [Concomitant]
     Route: 048

REACTIONS (4)
  - ACUTE ABDOMEN [None]
  - PERITONITIS [None]
  - RENAL FAILURE [None]
  - SUBILEUS [None]
